FAERS Safety Report 7592509-7 (Version None)
Quarter: 2011Q2

REPORT INFORMATION
  Report Type: 
  Country: None (occurrence: None)
  Receive Date: 20110628
  Receipt Date: 20110620
  Transmission Date: 20111010
  Serious: Yes (Disabling)
  Sender: FDA-Public Use
  Company Number: 2011-2047

PATIENT
  Sex: Female

DRUGS (1)
  1. DYSPORT [Suspect]
     Indication: FAMILIAL TREMOR
     Dosage: 450 UNITS (450 UNITS, SINGLE CYCLE, INTRAMUSCULAR
     Route: 030
     Dates: start: 20100702, end: 20100702

REACTIONS (11)
  - MUSCULAR WEAKNESS [None]
  - FATIGUE [None]
  - PRODUCT RECONSTITUTION ISSUE [None]
  - ORGANISING PNEUMONIA [None]
  - PARAESTHESIA [None]
  - CHEST PAIN [None]
  - LOCAL SWELLING [None]
  - PAIN IN EXTREMITY [None]
  - PYREXIA [None]
  - DYSPNOEA [None]
  - DYSPHAGIA [None]
